FAERS Safety Report 13717985 (Version 2)
Quarter: 2017Q3

REPORT INFORMATION
  Report Type: Spontaneous
  Country: IT (occurrence: IT)
  Receive Date: 20170705
  Receipt Date: 20170809
  Transmission Date: 20171127
  Serious: Yes (Other)
  Sender: FDA-Public Use
  Company Number: IT-ELI_LILLY_AND_COMPANY-IT201706011004

PATIENT
  Age: 85 Year

DRUGS (6)
  1. EUTIROX [Concomitant]
     Active Substance: LEVOTHYROXINE SODIUM
  2. ALLOPURINOL. [Concomitant]
     Active Substance: ALLOPURINOL
  3. ASACOL [Concomitant]
     Active Substance: MESALAMINE
  4. CLEXANE [Concomitant]
     Active Substance: ENOXAPARIN SODIUM
  5. OLANZAPINE. [Suspect]
     Active Substance: OLANZAPINE
     Indication: AGITATION
     Dosage: 5 MG, DAILY
     Route: 048
     Dates: start: 20160825, end: 20160828
  6. LOBIVON [Concomitant]
     Active Substance: NEBIVOLOL HYDROCHLORIDE

REACTIONS (2)
  - Off label use [Unknown]
  - Sopor [Unknown]

NARRATIVE: CASE EVENT DATE: 20160828
